FAERS Safety Report 9650990 (Version 2)
Quarter: 2013Q4

REPORT INFORMATION
  Report Type: Spontaneous
  Country: GB (occurrence: GB)
  Receive Date: 20131029
  Receipt Date: 20131029
  Transmission Date: 20140711
  Serious: Yes (Hospitalization)
  Sender: FDA-Public Use
  Company Number: PHFR2013GB006004

PATIENT
  Age: 46 Year
  Sex: Male

DRUGS (3)
  1. CLOZARIL [Suspect]
     Indication: SCHIZOPHRENIA
     Dosage: UNK
     Route: 048
     Dates: start: 20130719
  2. CLOZARIL [Suspect]
     Dosage: UNK (DOSE REDUCED)
  3. CLOZARIL [Suspect]
     Dosage: UNK UKN, UNK
     Dates: start: 20131025

REACTIONS (3)
  - Abdominal pain [Unknown]
  - White blood cell count increased [Unknown]
  - Neutrophil count increased [Unknown]
